FAERS Safety Report 5273234-4 (Version None)
Quarter: 2007Q1

REPORT INFORMATION
  Report Type: 
  Country: None (occurrence: None)
  Receive Date: 20070322
  Receipt Date: 20070313
  Transmission Date: 20070707
  Serious: Yes (Hospitalization)
  Sender: FDA-Public Use
  Company Number: US-MERCK-0703USA00434

PATIENT
  Age: 75 Year
  Sex: Male

DRUGS (2)
  1. JANUVIA [Suspect]
     Indication: DIABETES MELLITUS NON-INSULIN-DEPENDENT
     Route: 048
     Dates: start: 20070201, end: 20070301
  2. INSULIN [Concomitant]
     Route: 065

REACTIONS (4)
  - DRUG ADMINISTRATION ERROR [None]
  - ELECTROCARDIOGRAM QT CORRECTED INTERVAL PROLONGED [None]
  - OVERDOSE [None]
  - PULMONARY OEDEMA [None]
